FAERS Safety Report 15927709 (Version 1)
Quarter: 2019Q1

REPORT INFORMATION
  Report Type: Spontaneous
  Country: DE (occurrence: DE)
  Receive Date: 20190205
  Receipt Date: 20190205
  Transmission Date: 20190417
  Serious: Yes (Disabling)
  Sender: FDA-Public Use
  Company Number: DE-TEVA-2019-DE-1008140

PATIENT
  Age: 80 Year
  Sex: Female

DRUGS (10)
  1. RIVAROXABAN [Concomitant]
     Active Substance: RIVAROXABAN
     Indication: PULMONARY EMBOLISM
     Dosage: 20 MILLIGRAM DAILY; 20 MG, 1 TIME A DAY
     Route: 048
     Dates: start: 20150529
  2. BISOPROLOL HEMIFUMARAT [Concomitant]
     Indication: HYPERTENSION
     Dosage: 5/25 MG 1-0-0
     Route: 048
     Dates: start: 20150325
  3. PANTOPRAZOL SODIUM [Concomitant]
     Indication: PROPHYLAXIS
     Dosage: 40 MILLIGRAM DAILY; 40 MG,1 TIME A DAY
     Route: 048
     Dates: start: 20150325
  4. MOLSIDOMIN [Concomitant]
     Active Substance: MOLSIDOMINE
     Indication: ANTIANGIOGENIC THERAPY
     Dosage: 4 MILLIGRAM DAILY; 4 MG, 1 TIME A DAY
     Route: 048
     Dates: start: 20150325
  5. CYCLOPHOSPHAMID [Suspect]
     Active Substance: CYCLOPHOSPHAMIDE
     Indication: B-CELL LYMPHOMA
     Dosage: DAILY DOSE: 1280 MG MILLIGRAM(S) EVERY 2 WEEK
     Route: 042
     Dates: start: 20150507, end: 20150507
  6. VINCRISTIN [Suspect]
     Active Substance: VINCRISTINE
     Indication: B-CELL LYMPHOMA
     Dosage: DAILY DOSE: 3.4 MG MILLIGRAM(S) EVERY 2 WEEK
     Route: 042
     Dates: start: 20150507, end: 20150507
  7. DOXORUBICIN [Suspect]
     Active Substance: DOXORUBICIN
     Indication: B-CELL LYMPHOMA
     Dosage: DAILY DOSE: 85 MG MILLIGRAM(S) EVERY 2 WEEK
     Route: 042
     Dates: start: 20150507, end: 20150507
  8. PEGFILGRASTIM [Suspect]
     Active Substance: PEGFILGRASTIM
     Indication: B-CELL LYMPHOMA
     Dosage: DAILY DOSE: 6 MG MILLIGRAM(S) EVERY 2 WEEK
     Route: 058
     Dates: start: 20150509, end: 20150509
  9. RITUXIMAB. [Suspect]
     Active Substance: RITUXIMAB
     Indication: B-CELL LYMPHOMA
     Dosage: DAILY DOSE: 650 MG MILLIGRAM(S) EVERY 2 WEEK
     Route: 042
     Dates: start: 20150708, end: 20150708
  10. PREDNISOLON [Suspect]
     Active Substance: PREDNISOLONE
     Indication: B-CELL LYMPHOMA
     Dosage: 5 TAGE, 1-0-0, EVERY 14 DAYS FOR 5 DAYS
     Route: 048
     Dates: start: 20150507, end: 20150511

REACTIONS (1)
  - Peripheral sensory neuropathy [Recovered/Resolved]

NARRATIVE: CASE EVENT DATE: 20150714
